FAERS Safety Report 6506361-1 (Version None)
Quarter: 2009Q4

REPORT INFORMATION
  Report Type: 
  Country: None (occurrence: None)
  Receive Date: 20091218
  Receipt Date: 20091208
  Transmission Date: 20100525
  Serious: Yes (Hospitalization)
  Sender: FDA-Public Use
  Company Number: BE-WATSON-2009-10694

PATIENT
  Age: 48 Year
  Sex: Female

DRUGS (2)
  1. TRAZODONE HYDROCHLORIDE [Suspect]
     Indication: DEPRESSION
     Dosage: 200 MG, DAILY
     Route: 065
  2. VENLAFAXINE [Suspect]
     Indication: DEPRESSION
     Dosage: 75 MG, DAILY
     Route: 065

REACTIONS (1)
  - ACUTE HEPATIC FAILURE [None]
